FAERS Safety Report 10027419 (Version 1)
Quarter: 2014Q1

REPORT INFORMATION
  Report Type: Spontaneous
  Country: US (occurrence: US)
  Receive Date: 20140321
  Receipt Date: 20140321
  Transmission Date: 20141002
  Serious: No
  Sender: FDA-Public Use
  Company Number: US-PFIZER INC-2014077707

PATIENT
  Sex: Male

DRUGS (1)
  1. ADVIL PM [Suspect]
     Indication: INSOMNIA
     Dosage: ONE CAPSULE, ONCE A DAY (REPORTED AS ONE ADVIL PM EVERY AFTERNOON)

REACTIONS (1)
  - Rash [Unknown]
